FAERS Safety Report 4823290-X (Version None)
Quarter: 2005Q4

REPORT INFORMATION
  Report Type: 
  Country: None (occurrence: None)
  Receive Date: 20051107
  Receipt Date: 20051005
  Transmission Date: 20060501
  Serious: Yes (Hospitalization)
  Sender: FDA-Public Use
  Company Number: 2005-CZ-00756

PATIENT
  Age: 71 Year
  Sex: Female

DRUGS (2)
  1. METRONIDAZOLE [Suspect]
     Indication: CLOSTRIDIUM COLITIS
     Dosage: 1500 MG, IN 3 DIVIDED DOSES, ORAL
     Route: 048
  2. AMIODARONE IVAX 200 MG, COMPRIME SE CABLE (AMIODARONE) [Suspect]
     Indication: CLOSTRIDIUM COLITIS
     Dosage: 900 MG, INTRAVENOUS
     Route: 042

REACTIONS (7)
  - ATRIAL FIBRILLATION [None]
  - ELECTROCARDIOGRAM QT CORRECTED INTERVAL PROLONGED [None]
  - ELECTROCARDIOGRAM QT PROLONGED [None]
  - MITRAL VALVE INCOMPETENCE [None]
  - TORSADE DE POINTES [None]
  - TRICUSPID VALVE INCOMPETENCE [None]
  - VENTRICULAR TACHYCARDIA [None]
